FAERS Safety Report 12411745 (Version 1)
Quarter: 2016Q2

REPORT INFORMATION
  Report Type: Spontaneous
  Country: US (occurrence: US)
  Receive Date: 20160527
  Receipt Date: 20160527
  Transmission Date: 20160815
  Serious: No
  Sender: FDA-Public Use
  Company Number: US-009507513-1504USA003821

PATIENT
  Age: 86 Year
  Sex: Male

DRUGS (1)
  1. TEDIZOLID PHOSPHATE [Suspect]
     Active Substance: TEDIZOLID PHOSPHATE
     Indication: BACTERIAL INFECTION
     Dosage: 200 MG, QD
     Dates: start: 20140905

REACTIONS (1)
  - Abdominal discomfort [Unknown]
